FAERS Safety Report 4627355-7 (Version None)
Quarter: 2005Q1

REPORT INFORMATION
  Report Type: 
  Country: None (occurrence: None)
  Receive Date: 20050331
  Receipt Date: 20050316
  Transmission Date: 20050727
  Serious: Yes (Hospitalization)
  Sender: FDA-Public Use
  Company Number: 2005RL000032

PATIENT
  Age: 59 Year
  Sex: Male

DRUGS (3)
  1. PROPRANOLOL HYDROCHLORIDE [Suspect]
     Indication: HYPERTHYROIDISM
     Dosage: 20 MG; BID;
  2. AMLODIPINE [Concomitant]
  3. PROPYLTHIOURACIL [Concomitant]

REACTIONS (16)
  - ABNORMAL FAECES [None]
  - BLOOD ALBUMIN DECREASED [None]
  - COLITIS ISCHAEMIC [None]
  - COLONIC HAEMORRHAGE [None]
  - COLONIC POLYP [None]
  - GASTROINTESTINAL EROSION [None]
  - HAEMOGLOBIN DECREASED [None]
  - HYPERAEMIA [None]
  - IATROGENIC INJURY [None]
  - INJURY [None]
  - LARGE INTESTINAL ULCER [None]
  - MESENTERIC OCCLUSION [None]
  - MUCOSAL DRYNESS [None]
  - POST PROCEDURAL DIARRHOEA [None]
  - POST PROCEDURAL HAEMORRHAGE [None]
  - SKIN TURGOR DECREASED [None]
